FAERS Safety Report 10747724 (Version 3)
Quarter: 2015Q2

REPORT INFORMATION
  Report Type: Spontaneous
  Country: JP (occurrence: JP)
  Receive Date: 20150129
  Receipt Date: 20150414
  Transmission Date: 20150821
  Serious: Yes (Death, Hospitalization)
  Sender: FDA-Public Use
  Company Number: JP-JNJFOC-20150114895

PATIENT
  Age: 83 Year
  Sex: Male
  Weight: 56 kg

DRUGS (11)
  1. BIOFERMIN [Concomitant]
     Active Substance: BACILLUS SUBTILIS\LACTOBACILLUS ACIDOPHILUS\STREPTOCOCCUS FAECAIS
     Indication: CONSTIPATION
     Route: 048
     Dates: start: 20110915
  2. PIOGLITAZONE [Concomitant]
     Active Substance: PIOGLITAZONE
     Route: 048
  3. ZYTIGA [Suspect]
     Active Substance: ABIRATERONE ACETATE
     Indication: PROSTATE CANCER
     Route: 048
     Dates: start: 20141020, end: 20141224
  4. PREDNISOLONE. [Suspect]
     Active Substance: PREDNISOLONE
     Indication: PROSTATE CANCER
     Route: 048
     Dates: start: 20141020
  5. VOLTAREN [Concomitant]
     Active Substance: DICLOFENAC SODIUM
     Indication: PAIN
     Route: 054
     Dates: end: 20150104
  6. PRAVASTATIN SODIUM. [Concomitant]
     Active Substance: PRAVASTATIN SODIUM
     Route: 048
  7. JANUVIA [Concomitant]
     Active Substance: SITAGLIPTIN PHOSPHATE
     Route: 048
  8. GLIMEPIRIDE. [Concomitant]
     Active Substance: GLIMEPIRIDE
     Route: 048
  9. METGLUCO [Concomitant]
     Active Substance: METFORMIN HYDROCHLORIDE
     Route: 048
  10. DUROTEP [Concomitant]
     Active Substance: FENTANYL
     Indication: PAIN
     Route: 062
     Dates: start: 20150105
  11. BAYASPIRIN [Concomitant]
     Active Substance: ASPIRIN
     Route: 048

REACTIONS (5)
  - Hypokalaemia [Unknown]
  - Hepatic function abnormal [Unknown]
  - Weight increased [Unknown]
  - Cushingoid [Not Recovered/Not Resolved]
  - Cardiac failure [Fatal]

NARRATIVE: CASE EVENT DATE: 201412
